FAERS Safety Report 16404161 (Version 1)
Quarter: 2019Q2

REPORT INFORMATION
  Report Type: Spontaneous
  Country: FR (occurrence: FR)
  Receive Date: 20190607
  Receipt Date: 20190607
  Transmission Date: 20190711
  Serious: Yes (Hospitalization, Other)
  Sender: FDA-Public Use
  Company Number: FR-SA-2019SA153076

PATIENT
  Age: 43 Year
  Sex: Female
  Weight: 49 kg

DRUGS (4)
  1. RIFATER [Suspect]
     Active Substance: ISONIAZID\PYRAZINAMIDE\RIFAMPIN
     Indication: LYMPH NODE TUBERCULOSIS
     Dosage: 5 DF, QD
     Route: 048
     Dates: start: 20190419, end: 20190424
  2. PIRILENE [Concomitant]
     Active Substance: PYRAZINAMIDE
     Indication: LYMPH NODE TUBERCULOSIS
     Dosage: 2000 MG, QD
     Route: 048
     Dates: start: 20190426, end: 20190427
  3. RIMIFON [Interacting]
     Active Substance: ISONIAZID
     Indication: LYMPH NODE TUBERCULOSIS
     Dosage: 250 MG, QD
     Route: 048
     Dates: start: 20190426, end: 20190427
  4. RIFADINE [Suspect]
     Active Substance: RIFAMPIN
     Indication: LYMPH NODE TUBERCULOSIS
     Dosage: 600 MG, QD
     Route: 042
     Dates: start: 20190426, end: 20190427

REACTIONS (6)
  - Drug interaction [Recovered/Resolved]
  - Hepatocellular injury [Recovering/Resolving]
  - Pyrexia [Recovered/Resolved]
  - Gamma-glutamyltransferase increased [Recovering/Resolving]
  - Vomiting [Recovered/Resolved]
  - Nausea [Recovered/Resolved]

NARRATIVE: CASE EVENT DATE: 20190419
